FAERS Safety Report 16138570 (Version 1)
Quarter: 2019Q1

REPORT INFORMATION
  Report Type: Spontaneous
  Country: US (occurrence: US)
  Receive Date: 20190330
  Receipt Date: 20190330
  Transmission Date: 20190418
  Serious: No
  Sender: FDA-Public Use
  Company Number: PHEH2019US013357

PATIENT
  Sex: Male

DRUGS (3)
  1. DIPHENHYDRAMINE. [Suspect]
     Active Substance: DIPHENHYDRAMINE
     Indication: IRON DEFICIENCY ANAEMIA
     Dosage: 25 MG, QW
     Route: 042
  2. FAMOTIDINE. [Suspect]
     Active Substance: FAMOTIDINE
     Indication: IRON DEFICIENCY ANAEMIA
     Dosage: 20 MG, QW
     Route: 042
  3. DEXAMETHASONE. [Suspect]
     Active Substance: DEXAMETHASONE
     Indication: IRON DEFICIENCY ANAEMIA
     Dosage: 20 MG, QW
     Route: 042

REACTIONS (3)
  - Dizziness [Unknown]
  - Chills [Unknown]
  - Pain [Unknown]
